FAERS Safety Report 14918604 (Version 1)
Quarter: 2018Q2

REPORT INFORMATION
  Report Type: Spontaneous
  Country: US (occurrence: US)
  Receive Date: 20180521
  Receipt Date: 20180521
  Transmission Date: 20180711
  Serious: No
  Sender: FDA-Public Use
  Company Number: US-PFIZER INC-2018114683

PATIENT
  Age: 66 Year
  Sex: Female
  Weight: 89 kg

DRUGS (7)
  1. SINGULAIR [Concomitant]
     Active Substance: MONTELUKAST SODIUM
     Indication: RESPIRATORY DISORDER
     Dosage: UNK
  2. XALKORI [Suspect]
     Active Substance: CRIZOTINIB
     Indication: METASTASES TO LIVER
     Dosage: 1 DF, DAILY
  3. ATIVAN [Concomitant]
     Active Substance: LORAZEPAM
     Indication: SLEEP DISORDER
     Dosage: 1 MG, UNK
  4. XALKORI [Suspect]
     Active Substance: CRIZOTINIB
     Dosage: 50 MG, 1X/DAY (EVERY NIGHT)
     Dates: start: 201802
  5. SYMBICORT [Concomitant]
     Active Substance: BUDESONIDE\FORMOTEROL FUMARATE DIHYDRATE
     Dosage: UNK
  6. ATIVAN [Concomitant]
     Active Substance: LORAZEPAM
     Indication: GASTRIC DISORDER
  7. CITALOPRAM [Concomitant]
     Active Substance: CITALOPRAM HYDROBROMIDE
     Dosage: 40 MG, 1X/DAY

REACTIONS (6)
  - Drug dose omission [Unknown]
  - Gastric disorder [Not Recovered/Not Resolved]
  - Hypobarism [Unknown]
  - Appetite disorder [Recovering/Resolving]
  - Feeling abnormal [Recovering/Resolving]
  - Nausea [Unknown]

NARRATIVE: CASE EVENT DATE: 201802
